FAERS Safety Report 5011250-8 (Version None)
Quarter: 2006Q2

REPORT INFORMATION
  Report Type: 
  Country: None (occurrence: None)
  Receive Date: 20060524
  Receipt Date: 20060511
  Transmission Date: 20061013
  Serious: Yes (Other)
  Sender: FDA-Public Use
  Company Number: 200610628BWH

PATIENT
  Age: 83 Year
  Sex: Female
  Weight: 50.8029 kg

DRUGS (8)
  1. NEXAVAR [Suspect]
     Indication: METASTASES TO LUNG
     Dosage: 200 MG, BID, ORAL
     Route: 048
     Dates: end: 20060425
  2. NEXAVAR [Suspect]
     Indication: RENAL CELL CARCINOMA STAGE UNSPECIFIED
     Dosage: 200 MG, BID, ORAL
     Route: 048
     Dates: end: 20060425
  3. DIGOXIN [Concomitant]
  4. SPIRONOLACTONE [Concomitant]
  5. COZAAR [Concomitant]
  6. BISOPROLOL [Concomitant]
  7. ASPIRIN [Concomitant]
  8. MULTIVITAMIN WITHOUT IRON [Concomitant]

REACTIONS (4)
  - CEREBROVASCULAR ACCIDENT [None]
  - CONFUSIONAL STATE [None]
  - FATIGUE [None]
  - TRANSIENT ISCHAEMIC ATTACK [None]
